FAERS Safety Report 4839202-9 (Version None)
Quarter: 2005Q4

REPORT INFORMATION
  Report Type: 
  Country: None (occurrence: None)
  Receive Date: 20051129
  Receipt Date: 20051122
  Transmission Date: 20060501
  Serious: Yes (Hospitalization)
  Sender: FDA-Public Use
  Company Number: FR-GILEAD-2005-0008968

PATIENT
  Age: 44 Year
  Sex: Male

DRUGS (5)
  1. VIREAD [Suspect]
     Route: 048
     Dates: start: 20020315, end: 20050821
  2. TIPRANAVIR [Concomitant]
     Route: 048
     Dates: start: 20040301, end: 20050808
  3. NORVIR [Concomitant]
     Dates: start: 20001101
  4. VIDEX [Concomitant]
     Dates: start: 20040601
  5. ZIAGEN [Concomitant]
     Dates: start: 20040601

REACTIONS (5)
  - FANCONI SYNDROME ACQUIRED [None]
  - GENERAL PHYSICAL HEALTH DETERIORATION [None]
  - POLYDIPSIA [None]
  - POLYURIA [None]
  - PROTEINURIA [None]
